FAERS Safety Report 7644498-4 (Version None)
Quarter: 2011Q3

REPORT INFORMATION
  Report Type: 
  Country: None (occurrence: None)
  Receive Date: 20110725
  Receipt Date: 20110718
  Transmission Date: 20111222
  Serious: Yes (Disabling, Other)
  Sender: FDA-Public Use
  Company Number: UK-ACCORD-002527

PATIENT
  Age: 78 Year
  Sex: Male

DRUGS (4)
  1. WARFARIN SODIUM [Concomitant]
  2. ZOLADEX(ZOLADEX) [Concomitant]
  3. ITRACONAZOLE [Suspect]
     Indication: ASPERGILLOMA
     Dates: start: 20050201
  4. SIMVASTATIN [Suspect]
     Indication: PRODUCT USED FOR UNKNOWN INDICATION
     Dosage: 40.00-MG-1.00 TIMES PER 1.0DAYS / ORAL
     Route: 048
     Dates: start: 20050101

REACTIONS (8)
  - MUSCLE DISORDER [None]
  - DRUG INTERACTION [None]
  - ILL-DEFINED DISORDER [None]
  - ABASIA [None]
  - BLOOD CREATINE PHOSPHOKINASE INCREASED [None]
  - POLYNEUROPATHY [None]
  - MYOPATHY [None]
  - MYALGIA [None]
